FAERS Safety Report 10460245 (Version 2)
Quarter: 2014Q4

REPORT INFORMATION
  Report Type: Report from Study
  Country: DE (occurrence: PL)
  Receive Date: 20140917
  Receipt Date: 20141229
  Transmission Date: 20150528
  Serious: Yes (Other)
  Sender: FDA-Public Use
  Company Number: DE-ACTELION-A-NJ2014-105249

PATIENT
  Age: 0 Day
  Sex: Male
  Weight: 2 kg

DRUGS (1)
  1. VENTAVIS [Suspect]
     Active Substance: ILOPROST
     Indication: FOETAL EXPOSURE DURING PREGNANCY
     Route: 064

REACTIONS (4)
  - Foetal growth restriction [Unknown]
  - Premature baby [Unknown]
  - Low birth weight baby [Unknown]
  - Foetal exposure timing unspecified [Unknown]

NARRATIVE: CASE EVENT DATE: 20140909
